FAERS Safety Report 21833147 (Version 1)
Quarter: 2023Q1

REPORT INFORMATION
  Report Type: Spontaneous
  Country: US (occurrence: US)
  Receive Date: 20230106
  Receipt Date: 20230106
  Transmission Date: 20230417
  Serious: No
  Sender: FDA-Public Use
  Company Number: US-ALLERGAN-2242150US

PATIENT
  Sex: Female

DRUGS (10)
  1. QULIPTA [Suspect]
     Active Substance: ATOGEPANT
     Indication: Migraine
  2. DULOXETINE HYDROCHLORIDE [Concomitant]
     Active Substance: DULOXETINE HYDROCHLORIDE
  3. TOPIRAMATE [Concomitant]
     Active Substance: TOPIRAMATE
  4. METHOCARBAMOL [Concomitant]
     Active Substance: METHOCARBAMOL
  5. GABAPENTIN [Concomitant]
     Active Substance: GABAPENTIN
  6. LORAZEPAM [Concomitant]
     Active Substance: LORAZEPAM
  7. CARIPRAZINE HYDROCHLORIDE [Concomitant]
     Active Substance: CARIPRAZINE HYDROCHLORIDE
  8. Amphetamine-Dextroamphet ER [Concomitant]
  9. GALCANEZUMAB-GNLM [Concomitant]
     Active Substance: GALCANEZUMAB-GNLM
  10. Lisinopril-hydrochlorotiazide [Concomitant]

REACTIONS (1)
  - Drug ineffective [Unknown]
